FAERS Safety Report 9492915 (Version 2)
Quarter: 2015Q4

REPORT INFORMATION
  Report Type: Report from Study
  Country: US (occurrence: US)
  Receive Date: 20130902
  Receipt Date: 20151016
  Transmission Date: 20160305
  Serious: Yes (Hospitalization)
  Sender: FDA-Public Use
  Company Number: US-ROCHE-1268586

PATIENT
  Sex: Male

DRUGS (11)
  1. COPEGUS [Suspect]
     Active Substance: RIBAVIRIN
     Indication: CHRONIC HEPATITIS C
     Route: 048
  2. LISINOPRIL. [Concomitant]
     Active Substance: LISINOPRIL
  3. INSULIN [Concomitant]
     Active Substance: INSULIN NOS
  4. GABAPENTINE [Concomitant]
     Active Substance: GABAPENTIN
  5. PEGASYS [Suspect]
     Active Substance: PEGINTERFERON ALFA-2A
     Indication: CHRONIC HEPATITIS C
     Route: 058
  6. COPEGUS [Suspect]
     Active Substance: RIBAVIRIN
     Route: 048
  7. BISACODYL. [Concomitant]
     Active Substance: BISACODYL
  8. PREDNISONE. [Concomitant]
     Active Substance: PREDNISONE
  9. COPEGUS [Suspect]
     Active Substance: RIBAVIRIN
     Indication: PARAPROTEINAEMIA
     Route: 048
  10. PEGASYS [Suspect]
     Active Substance: PEGINTERFERON ALFA-2A
     Indication: PARAPROTEINAEMIA
  11. OXYMORPHONE [Concomitant]
     Active Substance: OXYMORPHONE

REACTIONS (4)
  - Infection [Unknown]
  - Pneumonia [Unknown]
  - Autoimmune disorder [Unknown]
  - Malaise [Unknown]
